FAERS Safety Report 4488587-4 (Version None)
Quarter: 2004Q4

REPORT INFORMATION
  Report Type: 
  Country: None (occurrence: None)
  Receive Date: 20041028
  Receipt Date: 20041028
  Transmission Date: 20050328
  Serious: Yes (Hospitalization)
  Sender: FDA-Public Use
  Company Number: None

PATIENT
  Age: 73 Year
  Sex: Male
  Weight: 99.7913 kg

DRUGS (10)
  1. NEULASTA [Suspect]
     Indication: GRANULOCYTOPENIA
     Dosage: 6 MG SQ PRN
     Route: 058
     Dates: start: 20041019
  2. RITUXAN [Concomitant]
  3. ONCOVIN [Concomitant]
  4. CYTOXAN [Concomitant]
  5. METOPROLOL SUCCINATE [Concomitant]
  6. ZOLOFT [Concomitant]
  7. PROSCAR [Concomitant]
  8. LANOXIN [Concomitant]
  9. DETROL [Concomitant]
  10. GEMFIBROZIL [Concomitant]

REACTIONS (1)
  - CHEST PAIN [None]
